FAERS Safety Report 13089443 (Version 2)
Quarter: 2017Q1

REPORT INFORMATION
  Report Type: Spontaneous
  Country: US (occurrence: US)
  Receive Date: 20170105
  Receipt Date: 20170110
  Transmission Date: 20170428
  Serious: No
  Sender: FDA-Public Use
  Company Number: US-PFIZER INC-2016603064

PATIENT
  Age: 64 Year
  Sex: Male

DRUGS (2)
  1. SUTENT [Suspect]
     Active Substance: SUNITINIB MALATE
     Indication: RENAL CANCER
     Dosage: 50 MG, CYCLIC, (TAKE 1 CAPSULE EVERY DAY FOR 28 DAYS ON AND THEN 14 DAYS OFF)
     Route: 048
     Dates: start: 20160124
  2. H-CHLOR 12 [Concomitant]
     Dosage: UNK, (SOL)

REACTIONS (1)
  - Neoplasm progression [Unknown]
